FAERS Safety Report 25422895 (Version 1)
Quarter: 2025Q2

REPORT INFORMATION
  Report Type: Spontaneous
  Country: US (occurrence: US)
  Receive Date: 20250611
  Receipt Date: 20250611
  Transmission Date: 20250716
  Serious: Yes (Death)
  Sender: ASTELLAS
  Company Number: US-ASTELLAS-2024-AER-008264

PATIENT

DRUGS (1)
  1. ZOLBETUXIMAB [Suspect]
     Active Substance: ZOLBETUXIMAB
     Indication: Product used for unknown indication
     Route: 042
     Dates: end: 20220209

REACTIONS (6)
  - Bacteraemia [Fatal]
  - Infection [Fatal]
  - Effusion [Fatal]
  - Oncologic complication [Fatal]
  - Cerebrovascular accident [Fatal]
  - General physical health deterioration [Fatal]
